FAERS Safety Report 10743491 (Version 3)
Quarter: 2015Q4

REPORT INFORMATION
  Report Type: Spontaneous
  Country: FR (occurrence: FR)
  Receive Date: 20150128
  Receipt Date: 20151027
  Transmission Date: 20160304
  Serious: Yes (Hospitalization)
  Sender: FDA-Public Use
  Company Number: PHHY2015FR007458

PATIENT
  Age: 9 Year
  Sex: Female

DRUGS (18)
  1. AMOXICILLIN-CLAVULANIC ACID [Suspect]
     Active Substance: AMOXICILLIN\CLAVULANIC ACID
     Indication: PLEURISY
  2. COLCHICINE. [Concomitant]
     Active Substance: COLCHICINE
     Indication: STAPHYLOCOCCAL ABSCESS
     Route: 065
  3. AMIKACIN [Concomitant]
     Active Substance: AMIKACIN
     Indication: PLEURISY
  4. COLCHICINE. [Concomitant]
     Active Substance: COLCHICINE
     Indication: PLEURISY
  5. COLCHICINE. [Concomitant]
     Active Substance: COLCHICINE
     Indication: PERICARDITIS
  6. OXACILLIN [Suspect]
     Active Substance: OXACILLIN SODIUM
     Indication: PLEURISY
  7. AMIKACIN [Concomitant]
     Active Substance: AMIKACIN
     Indication: STAPHYLOCOCCAL ABSCESS
     Route: 065
  8. CLINDAMYCIN [Concomitant]
     Active Substance: CLINDAMYCIN\CLINDAMYCIN PHOSPHATE
     Indication: PLEURISY
  9. CLINDAMYCIN [Concomitant]
     Active Substance: CLINDAMYCIN\CLINDAMYCIN PHOSPHATE
     Indication: PERICARDITIS
  10. AMOXICILLIN-CLAVULANIC ACID [Suspect]
     Active Substance: AMOXICILLIN\CLAVULANIC ACID
     Indication: PERICARDITIS
  11. AMIKACIN [Concomitant]
     Active Substance: AMIKACIN
     Indication: PERICARDITIS
  12. CLINDAMYCIN [Concomitant]
     Active Substance: CLINDAMYCIN\CLINDAMYCIN PHOSPHATE
     Indication: STAPHYLOCOCCAL ABSCESS
     Route: 065
  13. AMOXICILLIN-CLAVULANIC ACID [Suspect]
     Active Substance: AMOXICILLIN\CLAVULANIC ACID
     Indication: STAPHYLOCOCCAL ABSCESS
     Route: 065
  14. OXACILLIN [Suspect]
     Active Substance: OXACILLIN SODIUM
     Indication: PERICARDITIS
  15. OXACILLIN [Suspect]
     Active Substance: OXACILLIN SODIUM
     Indication: STAPHYLOCOCCAL ABSCESS
     Route: 065
  16. RIFAMPICIN [Concomitant]
     Active Substance: RIFAMPIN
     Indication: STAPHYLOCOCCAL ABSCESS
     Route: 065
  17. RIFAMPICIN [Concomitant]
     Active Substance: RIFAMPIN
     Indication: PLEURISY
  18. RIFAMPICIN [Concomitant]
     Active Substance: RIFAMPIN
     Indication: PERICARDITIS

REACTIONS (5)
  - Drug reaction with eosinophilia and systemic symptoms [Recovered/Resolved]
  - Hepatocellular injury [Recovered/Resolved]
  - Rash generalised [Recovered/Resolved]
  - Pyrexia [Recovered/Resolved]
  - Eosinophilia [Recovered/Resolved]
